FAERS Safety Report 10592435 (Version 1)
Quarter: 2014Q4

REPORT INFORMATION
  Report Type: Spontaneous
  Country: TR (occurrence: None)
  Receive Date: 20141117
  Receipt Date: 20141117
  Transmission Date: 20150529
  Serious: Yes (Hospitalization)
  Sender: FDA-Public Use
  Company Number: IMP_08139_2014

PATIENT
  Age: 4 Year
  Sex: Male

DRUGS (2)
  1. DIVALPROEX SODIUM. [Suspect]
     Active Substance: DIVALPROEX SODIUM
     Indication: SEIZURE
  2. CARBAMAZEPINE. [Concomitant]
     Active Substance: CARBAMAZEPINE

REACTIONS (11)
  - Kluver-Bucy syndrome [None]
  - Abnormal behaviour [None]
  - Logorrhoea [None]
  - Frontotemporal dementia [None]
  - Complex partial seizures [None]
  - Increased appetite [None]
  - Sexually inappropriate behaviour [None]
  - Irritability [None]
  - Aggression [None]
  - Emotional disorder [None]
  - Psychomotor hyperactivity [None]
